FAERS Safety Report 25075835 (Version 1)
Quarter: 2025Q1

REPORT INFORMATION
  Report Type: Spontaneous
  Country: US (occurrence: US)
  Receive Date: 20250313
  Receipt Date: 20250313
  Transmission Date: 20250408
  Serious: Yes (Other)
  Sender: PFIZER
  Company Number: US-PFIZER INC-PV202500028775

PATIENT
  Sex: Female
  Weight: 3 kg

DRUGS (18)
  1. ALPROSTADIL [Interacting]
     Active Substance: ALPROSTADIL
     Indication: Patent ductus arteriosus
  2. ALPROSTADIL [Interacting]
     Active Substance: ALPROSTADIL
  3. ALPROSTADIL [Interacting]
     Active Substance: ALPROSTADIL
  4. ALPROSTADIL [Interacting]
     Active Substance: ALPROSTADIL
  5. ACETAMINOPHEN [Interacting]
     Active Substance: ACETAMINOPHEN
     Indication: Pain
     Dosage: 20 MG/KG/DOSE EVERY 6 HOURS ON DOL 3 FOR 2 DOSES
     Route: 054
  6. ACETAMINOPHEN [Interacting]
     Active Substance: ACETAMINOPHEN
     Dosage: 20 MG/KG/DOSE EVERY 6 HOURS ON DOL 4 FOR 1 DOSE
     Route: 054
  7. ACETAMINOPHEN [Interacting]
     Active Substance: ACETAMINOPHEN
     Dosage: 20 MG/KG/DOSE EVERY 6 HOURS ON DOL 6 FOR 2 DOSES
     Route: 054
  8. ACETAMINOPHEN [Interacting]
     Active Substance: ACETAMINOPHEN
     Indication: Pain
     Dosage: 13.3 MG/KG/DOSE, EVERY 4 HRS, ON DOL 10 FOR 1 DOSE
     Route: 048
  9. ACETAMINOPHEN [Interacting]
     Active Substance: ACETAMINOPHEN
     Dosage: 13.3 MG/KG/DOSE, EVERY 4 HRS, ON DOL 11 FOR 1 DOSE
     Route: 048
  10. ACETAMINOPHEN [Interacting]
     Active Substance: ACETAMINOPHEN
     Dosage: 13.3 MG/KG/DOSE, EVERY 4 HRS, ON DOL 13 FOR 3 DOSES
     Route: 048
  11. ACETAMINOPHEN [Interacting]
     Active Substance: ACETAMINOPHEN
     Dosage: 13.3 MG/KG/DOSE, EVERY 4 HRS, ON DOL 14 FOR 1 DOSE
     Route: 048
  12. DEXTROSE [Concomitant]
     Active Substance: DEXTROSE MONOHYDRATE
     Indication: Hypoglycaemia
     Route: 040
  13. AMPICILLIN [Concomitant]
     Active Substance: AMPICILLIN
  14. STREPTODORNASE\STREPTOKINASE [Concomitant]
     Active Substance: STREPTODORNASE\STREPTOKINASE
  15. FUROSEMIDE [Concomitant]
     Active Substance: FUROSEMIDE
  16. MORPHINE [Concomitant]
     Active Substance: MORPHINE
  17. NYSTATIN [Concomitant]
     Active Substance: NYSTATIN
  18. SODIUM CHLORIDE [Concomitant]
     Active Substance: SODIUM CHLORIDE

REACTIONS (2)
  - Drug interaction [Unknown]
  - Therapeutic product effect decreased [Unknown]
